FAERS Safety Report 5670911-8 (Version None)
Quarter: 2008Q1

REPORT INFORMATION
  Report Type: 
  Country: None (occurrence: None)
  Receive Date: 20080317
  Receipt Date: 20080317
  Transmission Date: 20080703
  Serious: Yes (Other)
  Sender: FDA-Public Use
  Company Number: None

PATIENT
  Sex: Female

DRUGS (1)
  1. COPAXONE [Suspect]
     Indication: MULTIPLE SCLEROSIS
     Dosage: 20MG DAILY SQ  ABOUT 4 MONTHS OFF AND ON
     Route: 058

REACTIONS (2)
  - ANXIETY [None]
  - BACK PAIN [None]
